FAERS Safety Report 23657271 (Version 1)
Quarter: 2024Q1

REPORT INFORMATION
  Report Type: Other
  Country: CN (occurrence: None)
  Receive Date: 20240321
  Receipt Date: 20240321
  Transmission Date: 20240410
  Serious: Yes (Other)
  Sender: FDA-Public Use
  Company Number: CN-ROCHE-3393867

PATIENT

DRUGS (5)
  1. TRASTUZUMAB [Suspect]
     Active Substance: TRASTUZUMAB
     Indication: Triple positive breast cancer
     Dosage: LOADING DOSE FOR SIX CYCLES
     Route: 042
  2. TRASTUZUMAB [Suspect]
     Active Substance: TRASTUZUMAB
     Dosage: MAINTENANCE DOSE FOR SIX CYCLES
     Route: 042
  3. PYROTINIB [Suspect]
     Active Substance: PYROTINIB
     Indication: Triple positive breast cancer
     Route: 048
  4. DALPICICLIB [Suspect]
     Active Substance: DALPICICLIB
     Indication: Triple positive breast cancer
     Route: 048
  5. LETROZOLE [Suspect]
     Active Substance: LETROZOLE
     Indication: Triple positive breast cancer
     Route: 048

REACTIONS (15)
  - Diarrhoea [Unknown]
  - Neutrophil count decreased [Unknown]
  - White blood cell count decreased [Unknown]
  - Stomatitis [Unknown]
  - Anaemia [Unknown]
  - Vomiting [Unknown]
  - Alanine aminotransferase increased [Unknown]
  - Fatigue [Unknown]
  - Hypokalaemia [Unknown]
  - Aspartate aminotransferase increased [Unknown]
  - Hypocalcaemia [Unknown]
  - Nausea [Unknown]
  - Hyponatraemia [Unknown]
  - Platelet count decreased [Unknown]
  - Rash [Unknown]
